FAERS Safety Report 24587104 (Version 1)
Quarter: 2024Q4

REPORT INFORMATION
  Report Type: Report from Study
  Country: US (occurrence: US)
  Receive Date: 20241107
  Receipt Date: 20241107
  Transmission Date: 20250114
  Serious: Yes (Hospitalization)
  Sender: TAKEDA
  Company Number: US-TAKEDA-US201937576

PATIENT
  Sex: Female

DRUGS (9)
  1. PARATHYROID HORMONE [Suspect]
     Active Substance: PARATHYROID HORMONE
     Indication: Hypoparathyroidism
     Dosage: 75 MICROGRAM, 1X/DAY:QD
     Route: 065
     Dates: start: 2015
  2. PARATHYROID HORMONE [Suspect]
     Active Substance: PARATHYROID HORMONE
     Indication: Hypoparathyroidism
     Dosage: 75 MICROGRAM, 1X/DAY:QD
     Route: 065
     Dates: start: 2015
  3. PARATHYROID HORMONE [Suspect]
     Active Substance: PARATHYROID HORMONE
     Indication: Hypoparathyroidism
     Dosage: 75 MICROGRAM, 1X/DAY:QD
     Route: 065
     Dates: start: 2015
  4. PARATHYROID HORMONE [Suspect]
     Active Substance: PARATHYROID HORMONE
     Dosage: 75 MICROGRAM, QD
     Route: 058
  5. PARATHYROID HORMONE [Suspect]
     Active Substance: PARATHYROID HORMONE
     Dosage: 75 MICROGRAM, QD
     Route: 058
  6. PARATHYROID HORMONE [Suspect]
     Active Substance: PARATHYROID HORMONE
     Dosage: 75 MICROGRAM, QD
     Route: 058
  7. CALCIUM CARBONATE [Concomitant]
     Active Substance: CALCIUM CARBONATE
     Indication: Post procedural hypoparathyroidism
     Route: 065
  8. VITAMIN D3 [Concomitant]
     Active Substance: CHOLECALCIFEROL
     Indication: Post procedural hypoparathyroidism
     Route: 065
  9. FORTEO [Concomitant]
     Active Substance: TERIPARATIDE
     Indication: Post procedural hypoparathyroidism
     Route: 065

REACTIONS (2)
  - Hospitalisation [Unknown]
  - Recalled product [Unknown]
